FAERS Safety Report 4661613-5 (Version None)
Quarter: 2005Q2

REPORT INFORMATION
  Report Type: 
  Country: None (occurrence: None)
  Receive Date: 20050513
  Receipt Date: 20050502
  Transmission Date: 20051028
  Serious: Yes (Hospitalization)
  Sender: FDA-Public Use
  Company Number: 200513739US

PATIENT
  Age: 57 Year
  Sex: Female

DRUGS (14)
  1. LASIX [Suspect]
     Dosage: DOSE: UNK
  2. NASACORT [Suspect]
     Dosage: DOSE: UNK
  3. AVELOX [Suspect]
     Indication: BRONCHITIS
     Dosage: DOSE: UNK
  4. NASONEX [Suspect]
     Dosage: DOSE: UNK
  5. COUMADIN [Suspect]
     Dosage: DOSE: UNK
  6. NAPROSYN [Suspect]
     Dosage: DOSE: UNK
  7. TIAZAC [Suspect]
     Dosage: DOSE: UNK
  8. LIPITOR [Suspect]
     Dosage: DOSE: UNK
  9. TOPROL-XL [Suspect]
     Dosage: DOSE: UNK
  10. LISINOPRIL [Suspect]
     Dosage: DOSE: UNK
  11. PREDNISONE [Suspect]
     Dosage: DOSE: UNK
  12. HUMIBID LA [Suspect]
     Dosage: DOSE: UNK
  13. COMBIVENT [Suspect]
     Dosage: DOSE: UNK
  14. ESTRACE [Suspect]
     Dosage: DOSE: UNK

REACTIONS (2)
  - ABDOMINAL HAEMATOMA [None]
  - ABDOMINAL PAIN [None]
